FAERS Safety Report 8434747-7 (Version None)
Quarter: 2012Q2

REPORT INFORMATION
  Report Type: 
  Country: None (occurrence: None)
  Receive Date: 20120614
  Receipt Date: 20120606
  Transmission Date: 20120825
  Serious: Yes (Hospitalization)
  Sender: FDA-Public Use
  Company Number: US-US-EMD SERONO, INC.-7133983

PATIENT
  Sex: Female

DRUGS (1)
  1. REBIF [Suspect]
     Indication: MULTIPLE SCLEROSIS
     Route: 058
     Dates: start: 20100727

REACTIONS (11)
  - PANIC ATTACK [None]
  - DYSPEPSIA [None]
  - HEMIPARESIS [None]
  - JOINT INJURY [None]
  - BACK PAIN [None]
  - DYSURIA [None]
  - ANXIETY [None]
  - PAIN IN EXTREMITY [None]
  - MIGRAINE [None]
  - OEDEMA PERIPHERAL [None]
  - FALL [None]
